FAERS Safety Report 14424667 (Version 5)
Quarter: 2018Q1

REPORT INFORMATION
  Report Type: Spontaneous
  Country: JP (occurrence: JP)
  Receive Date: 20180123
  Receipt Date: 20180213
  Transmission Date: 20180509
  Serious: Yes (Life-Threatening, Hospitalization)
  Sender: FDA-Public Use
  Company Number: JP-PFIZER INC-2018026547

PATIENT
  Age: 49 Year
  Sex: Female
  Weight: 40 kg

DRUGS (5)
  1. PSL [Concomitant]
     Dosage: 60 MG (1.0 MG/KG), DAILY
  2. AMIODARONE HCL [Suspect]
     Active Substance: AMIODARONE HYDROCHLORIDE
     Indication: VENTRICULAR TACHYCARDIA
  3. PSL [Concomitant]
     Dosage: DOSE WAS TAPERED
  4. PSL [Concomitant]
     Dosage: 30 MG (0.5 MG/KG), DAILY
     Route: 048
  5. AMIODARONE HCL [Suspect]
     Active Substance: AMIODARONE HYDROCHLORIDE
     Indication: HYPERTROPHIC CARDIOMYOPATHY
     Dosage: 100 MG, DAILY
     Route: 065

REACTIONS (6)
  - Hyperthyroidism [Recovered/Resolved]
  - Respiratory muscle weakness [Recovered/Resolved]
  - Diaphragmatic paralysis [Recovered/Resolved]
  - Ventricular fibrillation [Recovered/Resolved]
  - Loss of consciousness [Recovered/Resolved]
  - Cardio-respiratory arrest [Recovered/Resolved]
